FAERS Safety Report 18339311 (Version 2)
Quarter: 2020Q4

REPORT INFORMATION
  Report Type: Report from Study
  Country: MX (occurrence: MX)
  Receive Date: 20201002
  Receipt Date: 20201013
  Transmission Date: 20210113
  Serious: Yes (Other)
  Sender: FDA-Public Use
  Company Number: NVSC2020MX265347

PATIENT
  Age: 48 Year
  Sex: Female
  Weight: 74 kg

DRUGS (7)
  1. EXFORGE HCT [Suspect]
     Active Substance: AMLODIPINE BESYLATE\HYDROCHLOROTHIAZIDE\VALSARTAN
     Dosage: 0.5 DF, BID
     Route: 048
     Dates: start: 20200625
  2. EXFORGE HCT [Suspect]
     Active Substance: AMLODIPINE BESYLATE\HYDROCHLOROTHIAZIDE\VALSARTAN
     Dosage: 1 DF, BID (5/160/12.5 MG) (IN THE MORNING AND AT NIGHT)
     Route: 048
     Dates: start: 20200725, end: 20200808
  3. HIGROTON [Suspect]
     Active Substance: CHLORTHALIDONE
     Indication: DIURETIC THERAPY
     Dosage: 1 DF (50 MG EVERY OTHER DAY)
     Route: 065
     Dates: end: 20200725
  4. EXFORGE HCT [Suspect]
     Active Substance: AMLODIPINE BESYLATE\HYDROCHLOROTHIAZIDE\VALSARTAN
     Indication: HYPERTENSION
     Dosage: 1 DF, QD (10/320/25 MG)
     Route: 048
     Dates: start: 201505, end: 201511
  5. EXFORGE HCT [Suspect]
     Active Substance: AMLODIPINE BESYLATE\HYDROCHLOROTHIAZIDE\VALSARTAN
     Dosage: 0.5 MG, BID (5/160/12.5 MG)
     Route: 048
     Dates: start: 20200808, end: 20200928
  6. EXFORGE [Suspect]
     Active Substance: AMLODIPINE BESYLATE\VALSARTAN
     Indication: HYPERTENSION
     Dosage: 0.5 DF, BID (5/160 MG)
     Route: 048
     Dates: start: 20200725
  7. EXFORGE HCT [Suspect]
     Active Substance: AMLODIPINE BESYLATE\HYDROCHLOROTHIAZIDE\VALSARTAN
     Dosage: 1 DF, QD (10/320/25 MG)
     Route: 048

REACTIONS (18)
  - Arrhythmia [Recovered/Resolved]
  - Urticaria [Not Recovered/Not Resolved]
  - Off label use [Unknown]
  - Product prescribing error [Unknown]
  - Poisoning [Recovered/Resolved]
  - Hypotension [Unknown]
  - Poisoning [Not Recovered/Not Resolved]
  - Drug hypersensitivity [Not Recovered/Not Resolved]
  - Palpitations [Not Recovered/Not Resolved]
  - Rash [Not Recovered/Not Resolved]
  - Colitis [Not Recovered/Not Resolved]
  - Pruritus [Unknown]
  - Dyspepsia [Unknown]
  - Wrong technique in product usage process [Unknown]
  - Hiatus hernia [Recovered/Resolved with Sequelae]
  - Rash [Recovered/Resolved]
  - Vasculitis [Unknown]
  - Drug hypersensitivity [Recovered/Resolved]

NARRATIVE: CASE EVENT DATE: 201506
